FAERS Safety Report 7519449-3 (Version None)
Quarter: 2011Q2

REPORT INFORMATION
  Report Type: 
  Country: None (occurrence: None)
  Receive Date: 20110602
  Receipt Date: 20110518
  Transmission Date: 20111010
  Serious: No
  Sender: FDA-Public Use
  Company Number: US-B.I. PHARMACEUTICALS,INC./RIDGEFIELD-2011-BP-13448BP

PATIENT
  Age: 67 Year
  Sex: Female

DRUGS (12)
  1. SPIRIVA [Suspect]
     Indication: CHRONIC OBSTRUCTIVE PULMONARY DISEASE
     Dosage: 18 MCG
     Route: 055
  2. COREG [Concomitant]
     Indication: CARDIAC DISORDER
     Route: 048
     Dates: start: 20010101
  3. IBUPROFEN [Concomitant]
     Indication: ARTHRITIS
     Dosage: 2400 MG
     Route: 048
     Dates: start: 19810101
  4. CARBIDOPA + LEVODOPA [Concomitant]
     Indication: RESTLESS LEGS SYNDROME
     Route: 048
     Dates: start: 20040101
  5. COZAAR [Concomitant]
     Indication: CARDIAC DISORDER
     Dosage: 25 MG
     Route: 048
     Dates: start: 20060101
  6. VITAMIN D [Concomitant]
     Indication: OSTEOPOROSIS
     Dosage: 3000 RT
     Route: 048
  7. DIAZEPAM [Concomitant]
     Indication: MUSCLE SPASMS
     Dosage: 10 MG
     Route: 048
     Dates: start: 20010101
  8. BACLOFEN [Concomitant]
     Indication: MUSCLE SPASMS
     Dosage: 40 MG
     Route: 048
     Dates: start: 19810101
  9. ASA COATED [Concomitant]
     Indication: ROUTINE HEALTH MAINTENANCE
     Dosage: 325 MG
     Route: 048
  10. HYDROCODONE BITARTRATE [Concomitant]
     Indication: BACK PAIN
     Route: 048
  11. TRIMETHOPRIM [Concomitant]
     Indication: CYSTITIS
     Dosage: 100 MG
     Route: 048
  12. LOVAZA [Concomitant]
     Indication: ROUTINE HEALTH MAINTENANCE
     Dosage: 1200 RT
     Route: 048

REACTIONS (1)
  - DRUG INEFFECTIVE [None]
